FAERS Safety Report 8056789-6 (Version None)
Quarter: 2012Q1

REPORT INFORMATION
  Report Type: 
  Country: None (occurrence: None)
  Receive Date: 20120119
  Receipt Date: 20120116
  Transmission Date: 20120608
  Serious: Yes (Hospitalization)
  Sender: FDA-Public Use
  Company Number: US-GLAXOSMITHKLINE-A0960221A

PATIENT
  Age: 66 Year
  Sex: Male

DRUGS (2)
  1. SPIRIVA [Concomitant]
  2. ADVAIR DISKUS 100/50 [Suspect]
     Indication: PRODUCT USED FOR UNKNOWN INDICATION
     Dosage: 1PUFF TWICE PER DAY
     Route: 055
     Dates: start: 20090101

REACTIONS (2)
  - DYSPNOEA [None]
  - HOSPITALISATION [None]
